FAERS Safety Report 25682659 (Version 1)
Quarter: 2025Q3

REPORT INFORMATION
  Report Type: Spontaneous
  Country: US (occurrence: US)
  Receive Date: 20250814
  Receipt Date: 20250814
  Transmission Date: 20251020
  Serious: Yes (Other)
  Sender: ELI LILLY AND COMPANY
  Company Number: US-ELI_LILLY_AND_COMPANY-US202508004683

PATIENT
  Age: 53 Year
  Sex: Female

DRUGS (5)
  1. ZEPBOUND [Suspect]
     Active Substance: TIRZEPATIDE
     Indication: Weight control
     Route: 065
     Dates: start: 20250729, end: 20250804
  2. CITALOPRAM [Concomitant]
     Active Substance: CITALOPRAM
     Indication: Depression
  3. PRAMIPEXOLE [Concomitant]
     Active Substance: PRAMIPEXOLE
     Indication: Restless legs syndrome
  4. TRAZODONE HYDROCHLORIDE [Concomitant]
     Active Substance: TRAZODONE HYDROCHLORIDE
     Indication: Sleep disorder
  5. ESTRADIOL [Concomitant]
     Active Substance: ESTRADIOL
     Indication: Menopause

REACTIONS (1)
  - Depression suicidal [Not Recovered/Not Resolved]

NARRATIVE: CASE EVENT DATE: 20250730
